FAERS Safety Report 4297134-1 (Version None)
Quarter: 2004Q1

REPORT INFORMATION
  Report Type: 
  Country: None (occurrence: None)
  Receive Date: 20040213
  Receipt Date: 20040206
  Transmission Date: 20041129
  Serious: Yes (Hospitalization)
  Sender: FDA-Public Use
  Company Number: 2003189084GB

PATIENT
  Age: 51 Year
  Sex: Female

DRUGS (9)
  1. ZYVOX [Suspect]
     Indication: OSTEOMYELITIS
     Dosage: 600 MG, BID, ORAL
     Route: 048
     Dates: start: 20030507, end: 20030615
  2. PROPRANOLOL [Concomitant]
  3. FERROUS SULFATE TAB [Concomitant]
  4. SPIRONOLACTONE [Concomitant]
  5. THIAMINE [Concomitant]
  6. LANSOPRAZOLE [Concomitant]
  7. FOLIC ACID [Concomitant]
  8. FRUSEMIDE [Concomitant]
  9. VITAMIN B COMPLEX CAP [Concomitant]

REACTIONS (5)
  - ANAEMIA [None]
  - CONFUSIONAL STATE [None]
  - GASTROINTESTINAL HAEMORRHAGE [None]
  - HEPATIC ENCEPHALOPATHY [None]
  - THROMBOCYTOPENIA [None]
